FAERS Safety Report 12283662 (Version 1)
Quarter: 2016Q2

REPORT INFORMATION
  Report Type: Spontaneous
  Country: JP (occurrence: JP)
  Receive Date: 20160419
  Receipt Date: 20160419
  Transmission Date: 20160815
  Serious: Yes (Hospitalization)
  Sender: FDA-Public Use
  Company Number: JP-ASTRAZENECA-2016SE40210

PATIENT
  Age: 70 Year
  Sex: Male

DRUGS (5)
  1. AMLODIPINE [Concomitant]
     Active Substance: AMLODIPINE BESYLATE
     Dosage: DOSE UNKNOWN
     Route: 048
     Dates: end: 20160408
  2. CLARITHROMYCIN. [Suspect]
     Active Substance: CLARITHROMYCIN
     Indication: SEASONAL ALLERGY
     Dosage: DOSE UNKNOWN
     Route: 048
     Dates: start: 20160405, end: 20160408
  3. IRBETAN [Concomitant]
     Active Substance: IRBESARTAN
     Route: 048
     Dates: end: 20160408
  4. CLARITHROMYCIN. [Suspect]
     Active Substance: CLARITHROMYCIN
     Indication: NASAL CONGESTION
     Dosage: DOSE UNKNOWN
     Route: 048
     Dates: start: 20160405, end: 20160408
  5. CRESTOR [Suspect]
     Active Substance: ROSUVASTATIN CALCIUM
     Indication: HYPERCHOLESTEROLAEMIA
     Route: 048
     Dates: start: 2010, end: 20160408

REACTIONS (6)
  - Tremor [Unknown]
  - Hepatic function abnormal [Unknown]
  - Fall [Unknown]
  - Rhabdomyolysis [Recovering/Resolving]
  - Hyperthermia [Unknown]
  - Influenza [Recovered/Resolved]

NARRATIVE: CASE EVENT DATE: 2016
